FAERS Safety Report 4424374-0 (Version None)
Quarter: 2004Q3

REPORT INFORMATION
  Report Type: 
  Country: None (occurrence: None)
  Receive Date: 20040812
  Receipt Date: 20040802
  Transmission Date: 20050211
  Serious: Yes (Other)
  Sender: FDA-Public Use
  Company Number: US-JNJFOC-20040603941

PATIENT
  Sex: Male

DRUGS (5)
  1. TOPAMAX [Suspect]
     Route: 049
  2. TOPAMAX [Suspect]
     Indication: MIGRAINE PROPHYLAXIS
     Route: 049
  3. ZOLOFT [Concomitant]
  4. ZOLOFT [Concomitant]
     Indication: ANXIETY
  5. ZANAFLEX [Concomitant]
     Indication: CERVICAL SPASM
     Dosage: 1 TO 2 THREE TIMES A DAY AS NECESSARY.

REACTIONS (1)
  - CATARACT [None]
